FAERS Safety Report 8791167 (Version 1)
Quarter: 2012Q4

REPORT INFORMATION
  Report Type: Spontaneous
  Country: US (occurrence: None)
  Receive Date: 20120914
  Receipt Date: 20120914
  Transmission Date: 20130627
  Serious: Yes (Hospitalization)
  Sender: FDA-Public Use
  Company Number: None

PATIENT
  Age: 65 Year
  Sex: Female
  Weight: 62.5 kg

DRUGS (8)
  1. ASA [Suspect]
     Indication: STROKE PREVENTION
     Dosage: 81MG DAILY PO
CHRONIC
     Route: 048
  2. MOBIC [Suspect]
     Indication: NECK PAIN
     Dosage: 7.5MG BID PRN PO
RECENT
     Route: 048
  3. SYNTHROID [Concomitant]
  4. FOLIC ACID [Concomitant]
  5. MVI [Concomitant]
  6. MILK THISTLE [Concomitant]
  7. CALCIUM CARBONATE [Concomitant]
  8. OMEGA 3 [Concomitant]

REACTIONS (2)
  - Gastrointestinal haemorrhage [None]
  - Dieulafoy^s vascular malformation [None]
